FAERS Safety Report 4264440-6 (Version None)
Quarter: 2004Q1

REPORT INFORMATION
  Report Type: 
  Country: None (occurrence: None)
  Receive Date: 20040106
  Receipt Date: 20031224
  Transmission Date: 20041129
  Serious: Yes (Hospitalization)
  Sender: FDA-Public Use
  Company Number: NL-GLAXOSMITHKLINE-B0318570A

PATIENT
  Sex: Male

DRUGS (1)
  1. EUCARDIC [Suspect]
     Route: 048
     Dates: start: 20031115

REACTIONS (1)
  - ANGINA PECTORIS [None]
